FAERS Safety Report 14182539 (Version 2)
Quarter: 2018Q3

REPORT INFORMATION
  Report Type: Spontaneous
  Country: US (occurrence: US)
  Receive Date: 20171113
  Receipt Date: 20180704
  Transmission Date: 20181010
  Serious: No
  Sender: FDA-Public Use
  Company Number: US-PFIZER INC-2017484103

PATIENT
  Age: 55 Year
  Sex: Male
  Weight: 95.25 kg

DRUGS (1)
  1. EUCRISA [Suspect]
     Active Substance: CRISABOROLE
     Indication: ECZEMA
     Dosage: UNK, 2X/DAY (TO THE AFFECTED AREAS)
     Dates: start: 20171104

REACTIONS (1)
  - Burning sensation [Recovering/Resolving]

NARRATIVE: CASE EVENT DATE: 20171104
